FAERS Safety Report 20048465 (Version 1)
Quarter: 2021Q4

REPORT INFORMATION
  Report Type: Spontaneous
  Country: JP (occurrence: None)
  Receive Date: 20211109
  Receipt Date: 20211109
  Transmission Date: 20220303
  Serious: Yes (Other)
  Sender: FDA-Public Use
  Company Number: 2021A796475

PATIENT
  Age: 80 Year
  Sex: Female

DRUGS (2)
  1. TAGRISSO [Suspect]
     Active Substance: OSIMERTINIB
     Indication: Non-small cell lung cancer
     Route: 048
  2. TAGRISSO [Suspect]
     Active Substance: OSIMERTINIB
     Indication: Non-small cell lung cancer
     Route: 048

REACTIONS (10)
  - Malignant neoplasm progression [Unknown]
  - Lung carcinoma cell type unspecified recurrent [Unknown]
  - Nail disorder [Unknown]
  - Skin necrosis [Unknown]
  - Weight decreased [Unknown]
  - Pyrexia [Unknown]
  - Eye discharge [Unknown]
  - Back pain [Unknown]
  - Skin fissures [Unknown]
  - Skin exfoliation [Unknown]

NARRATIVE: CASE EVENT DATE: 20210101
